FAERS Safety Report 5855347-9 (Version None)
Quarter: 2008Q3

REPORT INFORMATION
  Report Type: 
  Country: None (occurrence: None)
  Receive Date: 20080821
  Receipt Date: 20080812
  Transmission Date: 20090109
  Serious: Yes (Hospitalization)
  Sender: FDA-Public Use
  Company Number: 2008AL003000

PATIENT
  Age: 81 Year
  Sex: Female
  Weight: 68.9467 kg

DRUGS (5)
  1. DIGOXIN [Suspect]
     Indication: CARDIAC FAILURE CONGESTIVE
     Dosage: 0.125MG DAILY PO
     Route: 048
     Dates: start: 20071204, end: 20080217
  2. LISINOPRIL [Concomitant]
  3. SPIRIVA [Concomitant]
  4. HYDROCHLOROTHIAZIDE [Concomitant]
  5. EVISTA [Concomitant]

REACTIONS (5)
  - CARDIOACTIVE DRUG LEVEL INCREASED [None]
  - DEHYDRATION [None]
  - MALAISE [None]
  - NAUSEA [None]
  - VOMITING [None]
